FAERS Safety Report 7298715-3 (Version None)
Quarter: 2011Q1

REPORT INFORMATION
  Report Type: 
  Country: None (occurrence: None)
  Receive Date: 20110217
  Receipt Date: 20110214
  Transmission Date: 20110831
  Serious: Yes (Other)
  Sender: FDA-Public Use
  Company Number: JP-PFIZER INC-2011031810

PATIENT
  Sex: Female

DRUGS (2)
  1. XALATAN [Suspect]
     Dosage: UNK
  2. NASONEX [Suspect]
     Indication: RHINITIS
     Dosage: UNK

REACTIONS (2)
  - PERIORBITAL OEDEMA [None]
  - PRURITUS [None]
